FAERS Safety Report 9149101 (Version 1)
Quarter: 2013Q1

REPORT INFORMATION
  Report Type: Spontaneous
  Country: ES (occurrence: None)
  Receive Date: 20130301
  Receipt Date: 20130301
  Transmission Date: 20140127
  Serious: Yes (Death, Other)
  Sender: FDA-Public Use
  Company Number: SYM-2013-00928

PATIENT
  Age: 42 Year
  Sex: Male

DRUGS (9)
  1. FLUOROURACIL [Suspect]
     Indication: PANCREATIC CARCINOMA
     Dates: start: 2010, end: 2010
  2. OXALIPLATIN [Suspect]
     Indication: PANCREATIC CARCINOMA
     Dates: start: 2010
  3. ACID (FOLINIC ACID) [Suspect]
     Indication: PANCREATIC CARCINOMA
     Dates: start: 2010
  4. BEVACIZUMAB [Suspect]
     Indication: PANCREATIC CARCINOMA
     Dates: start: 2010, end: 2010
  5. IRINOTECAN [Suspect]
     Indication: PANCREATIC CARCINOMA
     Dates: start: 2010, end: 2010
  6. CAPECITABINE (CAPECITABINE) (CAPECITABINE) [Concomitant]
  7. FUROSEMIDE (FUROSEMIDE)(FUROSEMIDE) [Concomitant]
  8. ZOLEDRONIC ACID (ZOLEDRONIC ACID)(ZOLEDRONIC ACID) [Concomitant]
  9. SODIUM CHLORIDE (SODIUM CHLORIDE)(SODIUM CHLORIDE) [Concomitant]

REACTIONS (3)
  - Drug hypersensitivity [None]
  - Gastrointestinal toxicity [None]
  - Thrombocytopenia [None]
